FAERS Safety Report 9918244 (Version 2)
Quarter: 2014Q1

REPORT INFORMATION
  Report Type: Report from Study
  Country: FR (occurrence: FR)
  Receive Date: 20140224
  Receipt Date: 20140224
  Transmission Date: 20141002
  Serious: Yes (Hospitalization, Other)
  Sender: FDA-Public Use
  Company Number: FR-ROCHE-1163444

PATIENT
  Age: 34 Year
  Sex: Female

DRUGS (16)
  1. RITUXIMAB [Suspect]
     Indication: RHEUMATOID ARTHRITIS
     Route: 041
     Dates: start: 20080911
  2. RITUXIMAB [Suspect]
     Route: 041
     Dates: start: 20080926
  3. RITUXIMAB [Suspect]
     Route: 041
     Dates: start: 20090317
  4. RITUXIMAB [Suspect]
     Route: 041
     Dates: start: 20090408, end: 20090630
  5. TOCILIZUMAB [Suspect]
     Indication: PRODUCT USED FOR UNKNOWN INDICATION
     Route: 065
     Dates: start: 20100401
  6. TOCILIZUMAB [Suspect]
     Dosage: DOSE REDUCED
     Route: 065
     Dates: start: 20100708, end: 20100819
  7. TOCILIZUMAB [Suspect]
     Route: 065
     Dates: end: 20101118
  8. PARACETAMOL [Suspect]
     Indication: PRODUCT USED FOR UNKNOWN INDICATION
     Route: 065
  9. METHOTREXATE [Concomitant]
     Route: 065
  10. METHOTREXATE [Concomitant]
     Route: 065
     Dates: end: 201003
  11. CORTANCYL [Concomitant]
     Route: 065
  12. CORTANCYL [Concomitant]
     Route: 065
  13. PLAQUENIL [Concomitant]
     Route: 065
  14. METHYLPREDNISOLONE [Concomitant]
     Indication: PREMEDICATION
     Route: 065
  15. CELLCEPT [Concomitant]
     Route: 065
     Dates: start: 20090630
  16. ETANERCEPT [Concomitant]

REACTIONS (8)
  - Infusion related reaction [Recovered/Resolved]
  - Dermatitis allergic [Recovered/Resolved]
  - Drug-induced liver injury [Recovered/Resolved]
  - Hepatocellular injury [Not Recovered/Not Resolved]
  - Alopecia [Recovered/Resolved]
  - Vasculitis [Recovered/Resolved]
  - Erythema [Recovered/Resolved]
  - Pruritus [Recovered/Resolved]
